FAERS Safety Report 20075880 (Version 1)
Quarter: 2021Q4

REPORT INFORMATION
  Report Type: Spontaneous
  Country: US (occurrence: None)
  Receive Date: 20211115
  Receipt Date: 20211115
  Transmission Date: 20220303
  Serious: No
  Sender: FDA-Public Use
  Company Number: None

PATIENT
  Age: 53 Year
  Sex: Male

DRUGS (1)
  1. GLATIRAMER ACETATE [Suspect]
     Active Substance: GLATIRAMER ACETATE
     Dosage: OTHER FREQUENCY : OTHER;?
     Route: 058
     Dates: start: 200911

REACTIONS (6)
  - Flushing [None]
  - Nausea [None]
  - Chest pain [None]
  - Chills [None]
  - Back pain [None]
  - Sleep disorder [None]

NARRATIVE: CASE EVENT DATE: 20211115
